FAERS Safety Report 19692346 (Version 1)
Quarter: 2021Q3

REPORT INFORMATION
  Report Type: Spontaneous
  Country: US (occurrence: US)
  Receive Date: 20210812
  Receipt Date: 20210812
  Transmission Date: 20211014
  Serious: Yes (Death, Hospitalization, Other)
  Sender: FDA-Public Use
  Company Number: US-ALVOGEN-2021-ALVOGEN-117307

PATIENT
  Age: 19 Year
  Sex: Female

DRUGS (2)
  1. BUPROPION. [Suspect]
     Active Substance: BUPROPION
     Indication: PRODUCT USED FOR UNKNOWN INDICATION
     Dosage: 150?ML XL BUPROPION HCL, WHICH WAS REFILLED WITH 200 TABLETS 13 DAYS PRIOR, WAS FOUND EMPTY
  2. OXCARBAZEPINE. [Suspect]
     Active Substance: OXCARBAZEPINE
     Indication: PRODUCT USED FOR UNKNOWN INDICATION
     Dosage: OXCARBAZEPINE BOTTLE WAS FOUND PARTIALLY?EMPTY

REACTIONS (16)
  - Cardiogenic shock [Fatal]
  - Hyperhidrosis [Unknown]
  - Hypertension [Unknown]
  - Electrocardiogram QT prolonged [Unknown]
  - Hypotension [Unknown]
  - Hypothermia [Unknown]
  - Seizure [Unknown]
  - Electrocardiogram QRS complex prolonged [Unknown]
  - Bundle branch block left [Unknown]
  - Cardiopulmonary failure [Fatal]
  - Intentional overdose [Fatal]
  - Tachycardia [Unknown]
  - Ventricular hypokinesia [Unknown]
  - Unresponsive to stimuli [Unknown]
  - Metabolic acidosis [Unknown]
  - Hyperphosphataemia [Unknown]
